FAERS Safety Report 12214581 (Version 2)
Quarter: 2016Q2

REPORT INFORMATION
  Report Type: Spontaneous
  Country: US (occurrence: US)
  Receive Date: 20160328
  Receipt Date: 20160404
  Transmission Date: 20160815
  Serious: No
  Sender: FDA-Public Use
  Company Number: US-BAYER-2016-059183

PATIENT
  Age: 69 Year
  Sex: Male
  Weight: 71.65 kg

DRUGS (3)
  1. CLARITIN [Suspect]
     Active Substance: LORATADINE
     Indication: SEASONAL ALLERGY
     Dosage: 2 DF, ONCE
     Route: 048
  2. LISINOPRIL. [Concomitant]
     Active Substance: LISINOPRIL
  3. CLARITIN [Suspect]
     Active Substance: LORATADINE
     Indication: SEASONAL ALLERGY
     Dosage: 1 DF, QD
     Route: 048

REACTIONS (1)
  - Extra dose administered [Recovered/Resolved]

NARRATIVE: CASE EVENT DATE: 20160325
